FAERS Safety Report 4748031-6 (Version None)
Quarter: 2005Q3

REPORT INFORMATION
  Report Type: 
  Country: None (occurrence: None)
  Receive Date: 20050818
  Receipt Date: 20050509
  Transmission Date: 20060218
  Serious: Yes (Death)
  Sender: FDA-Public Use
  Company Number: 2005AP02762

PATIENT
  Age: 31878 Day
  Sex: Male

DRUGS (8)
  1. ZOLADEX [Suspect]
     Indication: PROSTATE CANCER
     Route: 058
     Dates: start: 20041018, end: 20050401
  2. NORVASC [Suspect]
     Indication: HYPERTENSION
     Route: 048
     Dates: start: 20041201
  3. TORSEMIDE [Suspect]
     Indication: OEDEMA DUE TO RENAL DISEASE
     Route: 048
     Dates: start: 20040630
  4. AMIYU [Concomitant]
     Indication: RENAL FAILURE CHRONIC
     Route: 048
     Dates: start: 20050413
  5. KETOBUN-A [Concomitant]
     Indication: HYPERURICAEMIA
     Route: 048
     Dates: start: 20040707
  6. NITOROL [Concomitant]
     Indication: MYOCARDIAL ISCHAEMIA
     Route: 048
     Dates: start: 20040707
  7. BUFFERIN [Concomitant]
     Indication: MYOCARDIAL ISCHAEMIA
     Route: 048
     Dates: start: 20040707
  8. OMEPRAZOLE [Concomitant]
     Indication: GASTRIC ULCER
     Route: 048
     Dates: start: 20041222

REACTIONS (6)
  - BLOOD PRESSURE DECREASED [None]
  - GENERALISED OEDEMA [None]
  - LEUKOPENIA [None]
  - PULMONARY CONGESTION [None]
  - PYREXIA [None]
  - RESPIRATORY ARREST [None]
